FAERS Safety Report 19007065 (Version 1)
Quarter: 2021Q1

REPORT INFORMATION
  Report Type: Spontaneous
  Country: US (occurrence: US)
  Receive Date: 20210313
  Receipt Date: 20210313
  Transmission Date: 20210420
  Serious: Yes (Other)
  Sender: FDA-Public Use
  Company Number: None

PATIENT
  Age: 74 Year
  Sex: Female
  Weight: 99 kg

DRUGS (9)
  1. LYRICA [Concomitant]
     Active Substance: PREGABALIN
  2. MELOXICAM. [Concomitant]
     Active Substance: MELOXICAM
  3. TYLENOL [Concomitant]
     Active Substance: ACETAMINOPHEN
  4. REGULAR VITAMINS [Concomitant]
  5. VARITHENA [Suspect]
     Active Substance: POLIDOCANOL
     Indication: VEIN DISORDER
     Route: 042
     Dates: start: 20210218
  6. LEVOTHYROXINE. [Concomitant]
     Active Substance: LEVOTHYROXINE
  7. ATENOLOL. [Concomitant]
     Active Substance: ATENOLOL
  8. LOVASTATIN. [Concomitant]
     Active Substance: LOVASTATIN
  9. CITRACAL [Concomitant]
     Active Substance: CALCIUM CITRATE

REACTIONS (3)
  - Procedural pain [None]
  - Pain [None]
  - Skin discolouration [None]

NARRATIVE: CASE EVENT DATE: 20210222
